FAERS Safety Report 19680933 (Version 3)
Quarter: 2021Q3

REPORT INFORMATION
  Report Type: Spontaneous
  Country: US (occurrence: US)
  Receive Date: 20210810
  Receipt Date: 20210915
  Transmission Date: 20211014
  Serious: Yes (Other)
  Sender: FDA-Public Use
  Company Number: US-FOUNDATIONCONSUMERHC-2021-US-016973

PATIENT
  Age: 45 Year
  Sex: Female
  Weight: 78.02 kg

DRUGS (1)
  1. PLAN B ONE?STEP [Suspect]
     Active Substance: LEVONORGESTREL
     Indication: POST COITAL CONTRACEPTION
     Dosage: 1.5MG X 1 DOSE
     Route: 048
     Dates: start: 20210527, end: 20210527

REACTIONS (4)
  - Dysmenorrhoea [Not Recovered/Not Resolved]
  - Uterine leiomyoma [Not Recovered/Not Resolved]
  - Abdominal pain [Recovered/Resolved]
  - Fallopian tube obstruction [Not Recovered/Not Resolved]

NARRATIVE: CASE EVENT DATE: 20210724
